FAERS Safety Report 7092874-3 (Version None)
Quarter: 2010Q4

REPORT INFORMATION
  Report Type: 
  Country: None (occurrence: None)
  Receive Date: 20101110
  Receipt Date: 20101027
  Transmission Date: 20110411
  Serious: Yes (Other)
  Sender: FDA-Public Use
  Company Number: US-PFIZER INC-2010137210

PATIENT
  Sex: Female
  Weight: 81.633 kg

DRUGS (5)
  1. CHANTIX [Suspect]
     Indication: SMOKING CESSATION THERAPY
     Dosage: 0.5 MG, DAILY
     Dates: start: 20100824
  2. CHANTIX [Suspect]
     Dosage: 1 MG, 2X/DAY
     Route: 048
  3. ZOLOFT [Concomitant]
     Indication: PANIC ATTACK
     Dosage: 100 MG, DAILY
     Route: 048
  4. ZOLOFT [Concomitant]
     Indication: ANXIETY
  5. LASIX [Concomitant]
     Indication: HYPERTENSION
     Dosage: 2 MG, DAILY
     Route: 048

REACTIONS (6)
  - ANXIETY [None]
  - DISTURBANCE IN ATTENTION [None]
  - EYE INFECTION [None]
  - FEAR [None]
  - FEELING ABNORMAL [None]
  - NERVOUSNESS [None]
